FAERS Safety Report 5614626-0 (Version None)
Quarter: 2008Q1

REPORT INFORMATION
  Report Type: 
  Country: None (occurrence: None)
  Receive Date: 20080131
  Receipt Date: 20080124
  Transmission Date: 20080703
  Serious: Yes (Death, Hospitalization)
  Sender: FDA-Public Use
  Company Number: 2008US000337

PATIENT
  Age: 45 Year
  Sex: Female

DRUGS (3)
  1. PROGRAF [Suspect]
     Indication: HEART TRANSPLANT
     Dosage: 1.5 MG, BID, ORAL
     Route: 048
     Dates: start: 20060108, end: 20071030
  2. PREDNISOLONE ACETATE [Concomitant]
  3. CELLCEPT [Concomitant]

REACTIONS (2)
  - HEART TRANSPLANT REJECTION [None]
  - RENAL FAILURE ACUTE [None]
